FAERS Safety Report 8666599 (Version 3)
Quarter: 2012Q4

REPORT INFORMATION
  Report Type: Report from Study
  Country: US (occurrence: US)
  Receive Date: 20120716
  Receipt Date: 20120927
  Transmission Date: 20130627
  Serious: Yes (Disabling)
  Sender: FDA-Public Use
  Company Number: US-JNJFOC-20120705532

PATIENT
  Age: 41 Year
  Sex: Female

DRUGS (7)
  1. REMICADE [Suspect]
     Indication: PRODUCT USED FOR UNKNOWN INDICATION
     Dosage: first dose
     Route: 042
     Dates: start: 200510, end: 20120604
  2. INDOCINE [Concomitant]
     Indication: ANTIINFLAMMATORY THERAPY
  3. PARAFON FORTE [Concomitant]
     Indication: MUSCLE RELAXANT THERAPY
  4. PREDNISONE [Concomitant]
     Indication: JOINT SWELLING
  5. LISINOPRIL [Concomitant]
     Indication: BLOOD PRESSURE
  6. AMITRIPTYLINE [Concomitant]
     Indication: HYPERSOMNIA
  7. LYRICA [Concomitant]

REACTIONS (2)
  - Migraine with aura [Not Recovered/Not Resolved]
  - Optic neuritis [Not Recovered/Not Resolved]
